FAERS Safety Report 5565591-6 (Version None)
Quarter: 2007Q4

REPORT INFORMATION
  Report Type: 
  Country: None (occurrence: None)
  Receive Date: 20071218
  Receipt Date: 20071206
  Transmission Date: 20080405
  Serious: Yes (Other)
  Sender: FDA-Public Use
  Company Number: US-PFIZER INC-2007104508

PATIENT
  Sex: Male
  Weight: 75 kg

DRUGS (4)
  1. CHANTIX [Suspect]
     Indication: SMOKING CESSATION THERAPY
     Dates: start: 20071101, end: 20071112
  2. BUPRENORPHINE HYDROCHLORIDE/NALOXONE HYDROCHLORIDE [Suspect]
     Indication: DRUG DEPENDENCE
     Dates: start: 20070101, end: 20071101
  3. ZOLOFT [Concomitant]
  4. ANALGESICS [Concomitant]

REACTIONS (3)
  - DYSURIA [None]
  - NEPHROLITHIASIS [None]
  - RENAL PAIN [None]
